FAERS Safety Report 5569549-2 (Version None)
Quarter: 2007Q4

REPORT INFORMATION
  Report Type: 
  Country: None (occurrence: None)
  Receive Date: 20071220
  Receipt Date: 20071023
  Transmission Date: 20080405
  Serious: Yes (Hospitalization, Other)
  Sender: FDA-Public Use
  Company Number: US-PURDUE-USA_2007_0030588

PATIENT
  Sex: Male
  Weight: 112 kg

DRUGS (5)
  1. OXYCONTIN [Suspect]
     Indication: BACK PAIN
     Dosage: UNK, SEE TEXT
     Dates: start: 20000928, end: 20040901
  2. SKELAXIN [Concomitant]
     Indication: MUSCLE SPASMS
     Dosage: 40 MG, QID
  3. CIMETIDINE [Concomitant]
     Indication: GASTROOESOPHAGEAL REFLUX DISEASE
     Dosage: 400 MG, DAILY
  4. AMBIEN [Concomitant]
     Indication: SLEEP DISORDER
     Dosage: 10 MG, DAILY
  5. NEUROTON [Concomitant]
     Indication: NERVE INJURY
     Dosage: 300 MG, DAILY

REACTIONS (17)
  - COMA [None]
  - COMMUNICATION DISORDER [None]
  - CONFUSIONAL STATE [None]
  - DELIRIUM [None]
  - DRUG DEPENDENCE [None]
  - DRUG WITHDRAWAL SYNDROME [None]
  - DYSPEPSIA [None]
  - EUPHORIC MOOD [None]
  - HALLUCINATION [None]
  - IMPAIRED WORK ABILITY [None]
  - INSOMNIA [None]
  - INTENTIONAL DRUG MISUSE [None]
  - LUNG DISORDER [None]
  - MEMORY IMPAIRMENT [None]
  - MOVEMENT DISORDER [None]
  - MUSCLE SPASMS [None]
  - SUBSTANCE ABUSE [None]
